FAERS Safety Report 4600837-X (Version None)
Quarter: 2005Q1

REPORT INFORMATION
  Report Type: 
  Country: None (occurrence: None)
  Receive Date: 20050304
  Receipt Date: 20050223
  Transmission Date: 20050727
  Serious: Yes (Hospitalization)
  Sender: FDA-Public Use
  Company Number: 2005AP01350

PATIENT
  Sex: Female
  Weight: 74 kg

DRUGS (1)
  1. FASLODEX [Suspect]
     Indication: BONE DISORDER
     Dosage: 250 MG DAILY IM
     Route: 030
     Dates: start: 20021125

REACTIONS (1)
  - ENDOMETRIAL CANCER [None]
